FAERS Safety Report 6850940-9 (Version None)
Quarter: 2010Q3

REPORT INFORMATION
  Report Type: 
  Country: None (occurrence: None)
  Receive Date: 20100716
  Receipt Date: 20071024
  Transmission Date: 20110219
  Serious: Yes (Other)
  Sender: FDA-Public Use
  Company Number: US-PFIZER INC-2007090884

PATIENT
  Sex: Female
  Weight: 83 kg

DRUGS (2)
  1. CHANTIX [Suspect]
     Indication: SMOKING CESSATION THERAPY
     Dates: start: 20070813
  2. ACCUPRIL [Concomitant]
     Indication: BLOOD PRESSURE

REACTIONS (6)
  - DIZZINESS [None]
  - HEADACHE [None]
  - MUSCULOSKELETAL DISCOMFORT [None]
  - NAUSEA [None]
  - RENAL DISORDER [None]
  - VISUAL IMPAIRMENT [None]
